FAERS Safety Report 11814288 (Version 1)
Quarter: 2015Q4

REPORT INFORMATION
  Report Type: Spontaneous
  Country: US (occurrence: None)
  Receive Date: 20151208
  Receipt Date: 20151208
  Transmission Date: 20160305
  Serious: Yes (Other)
  Sender: FDA-Public Use
  Company Number: None

PATIENT
  Age: 31 Year
  Sex: Female
  Weight: 81.65 kg

DRUGS (3)
  1. SERTRALINE [Suspect]
     Active Substance: SERTRALINE HYDROCHLORIDE
     Indication: ANXIETY
     Dosage: 1 PILL
     Route: 048
     Dates: start: 20141107, end: 20151107
  2. SERTRALINE [Suspect]
     Active Substance: SERTRALINE HYDROCHLORIDE
     Indication: DEPRESSION
     Dosage: 1 PILL
     Route: 048
     Dates: start: 20141107, end: 20151107
  3. CHEWY DAILY VITAMIN [Concomitant]

REACTIONS (11)
  - Anger [None]
  - Dizziness [None]
  - Headache [None]
  - Vision blurred [None]
  - Drug withdrawal syndrome [None]
  - Irritability [None]
  - Crying [None]
  - Migraine [None]
  - Nausea [None]
  - Hot flush [None]
  - Paranasal sinus discomfort [None]

NARRATIVE: CASE EVENT DATE: 20151107
